FAERS Safety Report 5827566-9 (Version None)
Quarter: 2008Q3

REPORT INFORMATION
  Report Type: 
  Country: None (occurrence: None)
  Receive Date: 20080730
  Receipt Date: 20080728
  Transmission Date: 20090109
  Serious: No
  Sender: FDA-Public Use
  Company Number: US-BOEHRINGER INGELHEIM GMBH, GERMANY-2008-BP-10702BP

PATIENT
  Age: 72 Year
  Sex: Male

DRUGS (5)
  1. CATAPRES-TTS-1 [Suspect]
     Indication: HYPERTENSION
     Route: 061
  2. CATAPRES-TTS-1 [Suspect]
     Indication: ATRIAL FIBRILLATION
  3. SIMVASTATIN [Concomitant]
  4. HYDROCHLOROTHIAZIDE [Concomitant]
  5. PRAZOSIN HCL [Concomitant]

REACTIONS (2)
  - BLOOD PRESSURE INCREASED [None]
  - VASCULAR STENT INSERTION [None]
